FAERS Safety Report 21256889 (Version 1)
Quarter: 2022Q3

REPORT INFORMATION
  Report Type: Spontaneous
  Country: US (occurrence: US)
  Receive Date: 20220826
  Receipt Date: 20220826
  Transmission Date: 20221026
  Serious: Yes (Hospitalization, Other)
  Sender: FDA-Public Use
  Company Number: US-BoehringerIngelheim-2022-BI-187926

PATIENT
  Age: 62 Year
  Sex: Male

DRUGS (4)
  1. EMPAGLIFLOZIN [Suspect]
     Active Substance: EMPAGLIFLOZIN
     Indication: Type 2 diabetes mellitus
     Route: 048
     Dates: start: 2014, end: 201502
  2. metformin extended-release (ER) [Concomitant]
     Indication: Type 2 diabetes mellitus
     Dosage: EXTENDED-RELEASE (ER)
  3. saxagliptin/ metformin ER [Concomitant]
     Indication: Type 2 diabetes mellitus
     Dosage: EXTENDED-RELEASE (ER) 5 MG/1000 MG DAILY
  4. PIOGLITAZONE [Concomitant]
     Active Substance: PIOGLITAZONE
     Indication: Type 2 diabetes mellitus

REACTIONS (2)
  - Emphysematous cystitis [Recovered/Resolved]
  - Urinary retention [Recovered/Resolved]

NARRATIVE: CASE EVENT DATE: 20150213
